FAERS Safety Report 8999375 (Version 1)
Quarter: 2013Q1

REPORT INFORMATION
  Report Type: Spontaneous
  Country: GB (occurrence: GB)
  Receive Date: 20130103
  Receipt Date: 20130103
  Transmission Date: 20140127
  Serious: Yes (Hospitalization)
  Sender: FDA-Public Use
  Company Number: GB-009507513-1212GBR009327

PATIENT
  Age: 53 Year
  Sex: 0

DRUGS (3)
  1. CYCLOPHOSPHAMIDE [Concomitant]
     Indication: PLASMA CELL MYELOMA
  2. THALIDOMIDE [Concomitant]
     Indication: PLASMA CELL MYELOMA
  3. DEXAMETHASONE [Suspect]
     Indication: PLASMA CELL MYELOMA

REACTIONS (1)
  - Strongyloidiasis [Recovered/Resolved]
